FAERS Safety Report 19007151 (Version 1)
Quarter: 2021Q1

REPORT INFORMATION
  Report Type: Spontaneous
  Country: US (occurrence: US)
  Receive Date: 20210313
  Receipt Date: 20210313
  Transmission Date: 20210420
  Serious: Yes (Death)
  Sender: FDA-Public Use
  Company Number: None

PATIENT
  Age: 53 Year
  Sex: Female

DRUGS (18)
  1. AMLODIPINE [Concomitant]
     Active Substance: AMLODIPINE BESYLATE
  2. VITAMIN B12 [Concomitant]
     Active Substance: CYANOCOBALAMIN
  3. PRILOSEC [Concomitant]
     Active Substance: OMEPRAZOLE MAGNESIUM
  4. PROBIOTIC [Concomitant]
     Active Substance: PROBIOTICS NOS
  5. REGLAN [Concomitant]
     Active Substance: METOCLOPRAMIDE HYDROCHLORIDE
  6. LEVOTHYROXIN [Concomitant]
     Active Substance: LEVOTHYROXINE
  7. MUCINEX [Concomitant]
     Active Substance: GUAIFENESIN
  8. VITAMIN A [Concomitant]
     Active Substance: VITAMIN A
  9. ASPIRIN. [Concomitant]
     Active Substance: ASPIRIN
  10. ZOFRAN [Concomitant]
     Active Substance: ONDANSETRON HYDROCHLORIDE
  11. VITAMIN C [Concomitant]
     Active Substance: ASCORBIC ACID
  12. MODAFINIL. [Concomitant]
     Active Substance: MODAFINIL
  13. VITAMIN D [Concomitant]
     Active Substance: VITAMIN D NOS
  14. RITUXAN [Suspect]
     Active Substance: RITUXIMAB
     Indication: SYSTEMIC LUPUS ERYTHEMATOSUS
     Dosage: INFUSE 1000 MG INTRAVENOUSLY ON DAY 1 AND DAY 15 3?4 HOURS. REPEAT EVERY 4?6 MONTHS.
     Route: 042
     Dates: start: 20170126
  15. ALLEGRA [Concomitant]
     Active Substance: FEXOFENADINE HYDROCHLORIDE
  16. BENZONATATE. [Concomitant]
     Active Substance: BENZONATATE
  17. MYCOPHENOLATE [Concomitant]
     Active Substance: MYCOPHENOLIC ACID
  18. OFEV [Concomitant]
     Active Substance: NINTEDANIB

REACTIONS (1)
  - Death [None]

NARRATIVE: CASE EVENT DATE: 20210221
